FAERS Safety Report 20965425 (Version 2)
Quarter: 2022Q3

REPORT INFORMATION
  Report Type: Spontaneous
  Country: TH (occurrence: TH)
  Receive Date: 20220616
  Receipt Date: 20220720
  Transmission Date: 20221026
  Serious: Yes (Hospitalization, Other)
  Sender: FDA-Public Use
  Company Number: TH-BoehringerIngelheim-2022-BI-175915

PATIENT
  Age: 84 Year
  Sex: Male
  Weight: 67 kg

DRUGS (3)
  1. PRADAXA [Suspect]
     Active Substance: DABIGATRAN ETEXILATE MESYLATE
     Indication: Cerebrovascular accident prophylaxis
     Route: 048
     Dates: start: 2020, end: 20220609
  2. PRADAXA [Suspect]
     Active Substance: DABIGATRAN ETEXILATE MESYLATE
     Indication: Atrial fibrillation
  3. BISOPROLOL [Concomitant]
     Active Substance: BISOPROLOL
     Indication: Product used for unknown indication
     Dosage: BISOPROLOL(5)1*2

REACTIONS (2)
  - Appendicitis [Recovered/Resolved]
  - Coagulation test abnormal [Recovered/Resolved]

NARRATIVE: CASE EVENT DATE: 20220609
